FAERS Safety Report 25601504 (Version 5)
Quarter: 2025Q4

REPORT INFORMATION
  Report Type: Report from Study
  Country: US (occurrence: US)
  Receive Date: 20250724
  Receipt Date: 20251002
  Transmission Date: 20260117
  Serious: Yes (Hospitalization)
  Sender: BIOGEN
  Company Number: US-BIOGEN-2025BI01314921

PATIENT
  Age: 77 Year
  Sex: Female

DRUGS (1)
  1. TYSABRI [Suspect]
     Active Substance: NATALIZUMAB
     Indication: Multiple sclerosis
     Route: 050
     Dates: start: 20060912, end: 20250430

REACTIONS (10)
  - Fall [Recovered/Resolved]
  - Agitation [Unknown]
  - Asthenia [Unknown]
  - Feeling abnormal [Unknown]
  - Multiple sclerosis [Unknown]
  - General physical health deterioration [Unknown]
  - Loss of consciousness [Unknown]
  - Drooling [Unknown]
  - Eye movement disorder [Unknown]
  - Gait disturbance [Unknown]

NARRATIVE: CASE EVENT DATE: 20250901
